FAERS Safety Report 12475061 (Version 1)
Quarter: 2016Q2

REPORT INFORMATION
  Report Type: Spontaneous
  Country: GB (occurrence: GB)
  Receive Date: 20160617
  Receipt Date: 20160617
  Transmission Date: 20160815
  Serious: Yes (Disabling)
  Sender: FDA-Public Use
  Company Number: GB-AUROBINDO-AUR-APL-2016-07507

PATIENT
  Age: 25 Year
  Sex: Female

DRUGS (1)
  1. RISPERIDONE FILM-COATED TABLETS 3 MG [Suspect]
     Active Substance: RISPERIDONE
     Indication: PRODUCT USED FOR UNKNOWN INDICATION
     Dosage: 3 MG, ONCE A DAY
     Route: 048

REACTIONS (2)
  - Atrioventricular block first degree [Not Recovered/Not Resolved]
  - Atrioventricular block second degree [Not Recovered/Not Resolved]

NARRATIVE: CASE EVENT DATE: 20160509
